FAERS Safety Report 7222118-0 (Version None)
Quarter: 2011Q1

REPORT INFORMATION
  Report Type: 
  Country: None (occurrence: None)
  Receive Date: 20110112
  Receipt Date: 20110105
  Transmission Date: 20110831
  Serious: Yes (Death, Other)
  Sender: FDA-Public Use
  Company Number: GB-PFIZER INC-2010128614

PATIENT
  Age: 88 Year
  Sex: Male

DRUGS (6)
  1. CIPROFLOXACIN HYDROCHLORIDE [Concomitant]
     Indication: URINARY TRACT INFECTION
     Dosage: 500 MG, 2X/DAY
     Route: 048
     Dates: start: 20100905, end: 20100908
  2. AMPICILLIN SODIUM/SULBACTAM SODIUM [Concomitant]
     Indication: URINARY TRACT INFECTION
     Dosage: 1.2 G, 3X/DAY
     Route: 042
     Dates: start: 20100909, end: 20100910
  3. BACLOFEN [Concomitant]
     Dosage: 10 MG, 3X/DAY
     Route: 048
     Dates: start: 20100806
  4. LINEZOLID [Suspect]
     Indication: OSTEOMYELITIS
     Dosage: 600 MG, 2X/DAY
     Route: 048
     Dates: start: 20100823, end: 20100911
  5. LEVOTHYROXINE [Concomitant]
     Indication: HYPOTHYROIDISM
     Dosage: 75 MG, 1X/DAY
     Route: 048
  6. BICALUTAMIDE [Concomitant]
     Indication: PROSTATE CANCER
     Dosage: 150 MG, 1X/DAY
     Route: 048

REACTIONS (3)
  - THROMBOCYTOPENIA [None]
  - ENCEPHALOPATHY [None]
  - GRAND MAL CONVULSION [None]
